FAERS Safety Report 7082284-7 (Version None)
Quarter: 2010Q4

REPORT INFORMATION
  Report Type: 
  Country: None (occurrence: None)
  Receive Date: 20101104
  Receipt Date: 20101026
  Transmission Date: 20110411
  Serious: Yes (Hospitalization)
  Sender: FDA-Public Use
  Company Number: US-BIOGENIDEC-2010BI034721

PATIENT
  Age: 56 Year
  Sex: Female

DRUGS (3)
  1. AVONEX [Suspect]
     Indication: MULTIPLE SCLEROSIS
     Route: 030
     Dates: start: 19990401, end: 20030101
  2. AVONEX [Suspect]
     Route: 030
     Dates: start: 20030101
  3. AVONEX [Suspect]
     Route: 030

REACTIONS (9)
  - DYSURIA [None]
  - FLUID RETENTION [None]
  - HYPERTONIC BLADDER [None]
  - INFLUENZA LIKE ILLNESS [None]
  - INTRACRANIAL ANEURYSM [None]
  - SWELLING [None]
  - URINARY INCONTINENCE [None]
  - URINARY TRACT INFECTION [None]
  - WEIGHT INCREASED [None]
